FAERS Safety Report 9118412 (Version 1)
Quarter: 2013Q1

REPORT INFORMATION
  Report Type: Spontaneous
  Country: US (occurrence: None)
  Receive Date: 20130221
  Receipt Date: 20130221
  Transmission Date: 20140127
  Serious: Yes (Life-Threatening)
  Sender: FDA-Public Use
  Company Number: None

PATIENT
  Age: 23 Year
  Sex: Female
  Weight: 31.8 kg

DRUGS (2)
  1. LACOSAMIDE [Suspect]
     Route: 040
  2. VALPROIC ACID [Suspect]
     Route: 040

REACTIONS (2)
  - Ventricular tachycardia [None]
  - Pulse absent [None]
